FAERS Safety Report 5006395-2 (Version None)
Quarter: 2006Q2

REPORT INFORMATION
  Report Type: 
  Country: None (occurrence: None)
  Receive Date: 20060519
  Receipt Date: 20060202
  Transmission Date: 20061013
  Serious: Yes (Death)
  Sender: FDA-Public Use
  Company Number: CA-ABBOTT-06P-028-0324210-00

PATIENT
  Sex: Male

DRUGS (5)
  1. DILAUDID-HP [Suspect]
     Indication: PAIN
     Dates: start: 20050418
  2. DILAUDID-HP [Suspect]
  3. MORPHINE [Concomitant]
     Indication: PAIN
     Route: 042
     Dates: start: 20050418
  4. DIMENHYDRINATE [Concomitant]
     Indication: NAUSEA
     Dates: start: 20050418
  5. OTHER MEDICATIONS [Concomitant]
     Indication: DRUG USE FOR UNKNOWN INDICATION

REACTIONS (12)
  - AGITATION [None]
  - ANOXIA [None]
  - CARDIO-RESPIRATORY ARREST [None]
  - CEREBRAL ISCHAEMIA [None]
  - DYSPNOEA [None]
  - FOAMING AT MOUTH [None]
  - HEART RATE DECREASED [None]
  - HYPOXIA [None]
  - ISCHAEMIA [None]
  - NAUSEA [None]
  - RESPIRATORY DEPRESSION [None]
  - VOMITING [None]
